FAERS Safety Report 26212919 (Version 1)
Quarter: 2025Q4

REPORT INFORMATION
  Report Type: Spontaneous
  Country: US (occurrence: US)
  Receive Date: 20251230
  Receipt Date: 20251230
  Transmission Date: 20260117
  Serious: Yes (Hospitalization)
  Sender: DR REDDYS
  Company Number: None

PATIENT
  Age: 57 Year
  Sex: Female

DRUGS (2)
  1. VINORELBINE [Suspect]
     Active Substance: VINORELBINE TARTRATE
     Indication: Adenoid cystic carcinoma
  2. CISPLATIN [Suspect]
     Active Substance: CISPLATIN
     Indication: Adenoid cystic carcinoma

REACTIONS (1)
  - Febrile neutropenia [Unknown]
